FAERS Safety Report 23931375 (Version 3)
Quarter: 2024Q2

REPORT INFORMATION
  Report Type: Report from Study
  Country: CA (occurrence: CA)
  Receive Date: 20240603
  Receipt Date: 20240620
  Transmission Date: 20240715
  Serious: Yes (Hospitalization, Other)
  Sender: FDA-Public Use
  Company Number: CA-SAMSUNG BIOEPIS-SB-2024-16666

PATIENT
  Age: 46 Year
  Sex: Female

DRUGS (1)
  1. RENFLEXIS [Suspect]
     Active Substance: INFLIXIMAB-ABDA
     Indication: Crohn^s disease
     Route: 065
     Dates: start: 20240221

REACTIONS (11)
  - Cerebrovascular accident [Unknown]
  - Headache [Unknown]
  - Migraine [Unknown]
  - Hypoaesthesia [Not Recovered/Not Resolved]
  - Paraesthesia [Recovered/Resolved]
  - Blindness transient [Recovered/Resolved]
  - Fatigue [Recovered/Resolved]
  - Visual impairment [Not Recovered/Not Resolved]
  - Brain fog [Unknown]
  - Thyroid disorder [Recovered/Resolved]
  - Off label use [Unknown]

NARRATIVE: CASE EVENT DATE: 20240518
